FAERS Safety Report 13926702 (Version 1)
Quarter: 2017Q3

REPORT INFORMATION
  Report Type: Spontaneous
  Country: US (occurrence: None)
  Receive Date: 20170831
  Receipt Date: 20170831
  Transmission Date: 20171127
  Serious: Yes (Hospitalization)
  Sender: FDA-Public Use
  Company Number: None

PATIENT
  Age: 50 Year
  Sex: Female

DRUGS (1)
  1. ETOPOSIDE 50MG [Suspect]
     Active Substance: ETOPOSIDE
     Indication: MALIGNANT PERITONEAL NEOPLASM
     Dosage: 2 CAPSULES DAILY ORAL
     Route: 048
     Dates: start: 20170802

REACTIONS (1)
  - Internal haemorrhage [None]

NARRATIVE: CASE EVENT DATE: 201708
